FAERS Safety Report 4523463-X (Version None)
Quarter: 2004Q4

REPORT INFORMATION
  Report Type: 
  Country: None (occurrence: None)
  Receive Date: 20041117
  Receipt Date: 20040629
  Transmission Date: 20050328
  Serious: Yes (Hospitalization)
  Sender: FDA-Public Use
  Company Number: US-JNJFOC-20040705616

PATIENT
  Age: 34 Year
  Sex: Male

DRUGS (13)
  1. LEVOFLOXACIN [Suspect]
     Dosage: 250 MG, 1 IN 1 DAY, INTRAVENOUS
     Route: 042
  2. CHLORPROMAZINE [Suspect]
     Indication: HICCUPS
  3. BACLOFEN [Concomitant]
  4. DEXAMETHASONE [Concomitant]
  5. ETHAMBUTOL HCL (ETHAMBUTOL) [Concomitant]
  6. IRON SULFATETHLAMIN (IRON) [Concomitant]
  7. ISONIAZID [Concomitant]
  8. LEUCOVORIN CALCIUM [Concomitant]
  9. OXYCODONE HCL (OXYCODONE HYDROCHLORIDE) [Concomitant]
  10. PANTOPRAZOLE (PANTOPRAZOLE) [Concomitant]
  11. PYRIMETHAMINE TAB [Concomitant]
  12. SULFADIAZINE [Concomitant]
  13. VANCOMYCIN [Concomitant]

REACTIONS (2)
  - TORSADE DE POINTES [None]
  - VENTRICULAR TACHYCARDIA [None]
